FAERS Safety Report 10932021 (Version 2)
Quarter: 2015Q2

REPORT INFORMATION
  Report Type: Spontaneous
  Country: US (occurrence: US)
  Receive Date: 20150319
  Receipt Date: 20150406
  Transmission Date: 20150821
  Serious: Yes (Other)
  Sender: FDA-Public Use
  Company Number: US-BAYER-2015-042176

PATIENT
  Age: 26 Year
  Sex: Female

DRUGS (2)
  1. IMPLANON [Concomitant]
     Active Substance: ETONOGESTREL
     Dosage: UNK
     Dates: start: 2015
  2. SKYLA [Suspect]
     Active Substance: LEVONORGESTREL
     Indication: CONTRACEPTION
     Dosage: 14 MCG/24HR, CONT
     Route: 015
     Dates: start: 20140825

REACTIONS (7)
  - Complication of device removal [None]
  - Device dislocation [None]
  - Device breakage [None]
  - Drug ineffective [None]
  - Abdominal pain [None]
  - Pregnancy with contraceptive device [None]
  - Device difficult to use [None]

NARRATIVE: CASE EVENT DATE: 201412
